FAERS Safety Report 16894415 (Version 1)
Quarter: 2019Q4

REPORT INFORMATION
  Report Type: Spontaneous
  Country: US (occurrence: US)
  Receive Date: 20190813
  Receipt Date: 20190813
  Transmission Date: 20200122
  Serious: No
  Sender: FDA-Public Use
  Company Number: None

PATIENT
  Age: 56 Year
  Sex: Female

DRUGS (1)
  1. SKYRIZI [Suspect]
     Active Substance: RISANKIZUMAB-RZAA
     Indication: PSORIASIS
     Dates: start: 20190812

REACTIONS (4)
  - Arthritis [None]
  - Pyrexia [None]
  - Oropharyngeal pain [None]
  - Muscle spasms [None]

NARRATIVE: CASE EVENT DATE: 20190813
